FAERS Safety Report 9562611 (Version 9)
Quarter: 2014Q1

REPORT INFORMATION
  Report Type: Report from Study
  Country: US (occurrence: US)
  Receive Date: 20130927
  Receipt Date: 20140123
  Transmission Date: 20141002
  Serious: Yes (Death, Hospitalization, Other)
  Sender: FDA-Public Use
  Company Number: US-PFIZER INC-2013274106

PATIENT
  Age: 81 Year
  Sex: Male
  Weight: 70 kg

DRUGS (9)
  1. ZOLOFT [Suspect]
     Indication: DEPRESSION
     Dosage: 100 MG, DAILY
     Dates: start: 20080317
  2. QUINAPRIL HCL [Suspect]
     Indication: HYPERTENSION
     Dosage: 20 MG, DAILY
     Dates: start: 20101110
  3. ARICEPT [Suspect]
     Indication: DEMENTIA ALZHEIMER^S TYPE
     Dosage: UNK
     Dates: start: 20060215
  4. NAMENDA [Suspect]
     Indication: DEMENTIA ALZHEIMER^S TYPE
     Dosage: UNK
     Dates: start: 20080428
  5. VITAMIN D [Concomitant]
     Dosage: UNK
     Dates: start: 20110323
  6. AMLODIPINE [Concomitant]
     Dosage: UNK
     Dates: start: 20101124
  7. NAPROXEN [Concomitant]
     Dosage: UNK
     Dates: start: 20110401, end: 20110405
  8. NAPROXEN [Concomitant]
     Dosage: UNK
     Dates: start: 201106
  9. ASPIRIN [Concomitant]
     Dosage: UNK
     Dates: start: 20080610

REACTIONS (5)
  - Dementia Alzheimer^s type [Fatal]
  - Delirium [Fatal]
  - Asthenia [Fatal]
  - Cough [Unknown]
  - Incontinence [Unknown]
